FAERS Safety Report 7825139-X (Version None)
Quarter: 2011Q4

REPORT INFORMATION
  Report Type: 
  Country: None (occurrence: None)
  Receive Date: 20111019
  Receipt Date: 20111006
  Transmission Date: 20120403
  Serious: Yes (Other)
  Sender: FDA-Public Use
  Company Number: CA-JNJFOC-20111007465

PATIENT
  Sex: Male
  Weight: 84 kg

DRUGS (14)
  1. VITAMIN D [Concomitant]
  2. CITALOPRAM HYDROBROMIDE [Concomitant]
  3. PREDNISONE [Concomitant]
  4. REMICADE [Suspect]
     Indication: COLITIS ULCERATIVE
     Dosage: TOTAL OF 10 INFUSIONS
     Route: 042
     Dates: start: 20100728
  5. FLONASE [Concomitant]
  6. ASPIRIN [Concomitant]
  7. ZOPICLONE [Concomitant]
  8. MESALAMINE [Concomitant]
  9. CORTIFOAM [Concomitant]
  10. VERAPAMIL [Concomitant]
  11. CRESTOR [Concomitant]
  12. HYDROCHLOROTHIAZIDE [Concomitant]
  13. SLOW-K [Concomitant]
  14. TYLENOL W/ CODEINE [Concomitant]

REACTIONS (8)
  - INFUSION RELATED REACTION [None]
  - BLOOD PRESSURE INCREASED [None]
  - BACK PAIN [None]
  - TREMOR [None]
  - HEART RATE INCREASED [None]
  - PALLOR [None]
  - BODY TEMPERATURE INCREASED [None]
  - CHILLS [None]
